FAERS Safety Report 7430489-5 (Version None)
Quarter: 2011Q2

REPORT INFORMATION
  Report Type: 
  Country: None (occurrence: None)
  Receive Date: 20110421
  Receipt Date: 20110114
  Transmission Date: 20111010
  Serious: Yes (Other)
  Sender: FDA-Public Use
  Company Number: US-ASTRAZENECA-2010SE56335

PATIENT
  Sex: Female

DRUGS (3)
  1. CRESTOR [Suspect]
     Route: 048
  2. ZETIA [Suspect]
     Route: 065
  3. TOPROL-XL [Suspect]
     Route: 048

REACTIONS (2)
  - TRICHORRHEXIS [None]
  - MUSCLE SPASMS [None]
